FAERS Safety Report 8249092-2 (Version None)
Quarter: 2012Q2

REPORT INFORMATION
  Report Type: 
  Country: None (occurrence: None)
  Receive Date: 20120402
  Receipt Date: 20120328
  Transmission Date: 20120825
  Serious: No
  Sender: FDA-Public Use
  Company Number: US-PFIZER INC-2012080327

PATIENT
  Sex: Male
  Weight: 79.365 kg

DRUGS (2)
  1. ATENOLOL [Concomitant]
     Indication: HYPERTENSION
     Dosage: 50/20 TB DAILY
  2. VIAGRA [Suspect]
     Indication: ERECTILE DYSFUNCTION
     Dosage: 100MG TABLET SPLIT AS NEEDED
     Route: 048
     Dates: start: 20050101

REACTIONS (1)
  - DRUG INEFFECTIVE [None]
